FAERS Safety Report 6216865-7 (Version None)
Quarter: 2009Q2

REPORT INFORMATION
  Report Type: 
  Country: None (occurrence: None)
  Receive Date: 20090605
  Receipt Date: 20090602
  Transmission Date: 20091009
  Serious: Yes (Death)
  Sender: FDA-Public Use
  Company Number: US-ABBOTT-09P-163-0577727-00

PATIENT
  Sex: Female
  Weight: 54.48 kg

DRUGS (7)
  1. HUMIRA [Suspect]
     Indication: DRUG USE FOR UNKNOWN INDICATION
     Dates: start: 20090408, end: 20090408
  2. HUMIRA [Suspect]
     Dates: start: 20090506, end: 20090506
  3. HUMIRA [Suspect]
     Dates: start: 20090520, end: 20090520
  4. VITAMIN TAB [Concomitant]
     Indication: DRUG USE FOR UNKNOWN INDICATION
     Route: 048
     Dates: start: 20090326, end: 20090528
  5. PREDNISONE [Concomitant]
     Indication: RHEUMATOID ARTHRITIS
     Route: 048
     Dates: start: 20090505, end: 20090510
  6. AZITHROMYCIN [Concomitant]
     Indication: NASOPHARYNGITIS
     Route: 048
     Dates: start: 20090520, end: 20090524
  7. ROBITUSSIN DM [Concomitant]
     Indication: NASOPHARYNGITIS
     Dosage: 1.5 TIMES DAILY
     Route: 048
     Dates: start: 20090505, end: 20090509

REACTIONS (1)
  - ABORTION SPONTANEOUS [None]
